FAERS Safety Report 21208408 (Version 2)
Quarter: 2022Q4

REPORT INFORMATION
  Report Type: Report from Study
  Country: US (occurrence: US)
  Receive Date: 20220812
  Receipt Date: 20221207
  Transmission Date: 20230113
  Serious: Yes (Death, Hospitalization, Other)
  Sender: FDA-Public Use
  Company Number: US-TAKEDA-2022TUS032826

PATIENT
  Age: 66 Year
  Sex: Female
  Weight: 95 kg

DRUGS (4)
  1. BRIGATINIB [Suspect]
     Active Substance: BRIGATINIB
     Indication: Breast cancer female
     Dosage: 180 MILLIGRAM, QD
     Route: 065
     Dates: start: 20220601
  2. BRIGATINIB [Suspect]
     Active Substance: BRIGATINIB
     Indication: Lymphoma
  3. BRIGATINIB [Suspect]
     Active Substance: BRIGATINIB
     Indication: Hepatic cancer
  4. BRIGATINIB [Suspect]
     Active Substance: BRIGATINIB
     Indication: Lung neoplasm malignant

REACTIONS (7)
  - Death [Fatal]
  - Illness [Unknown]
  - Pruritus [Unknown]
  - Feeling abnormal [Unknown]
  - Electric shock sensation [Unknown]
  - Hot flush [Unknown]
  - Off label use [Unknown]

NARRATIVE: CASE EVENT DATE: 20220903
